FAERS Safety Report 10094457 (Version 1)
Quarter: 2014Q2

REPORT INFORMATION
  Report Type: Spontaneous
  Country: US (occurrence: None)
  Receive Date: 20140421
  Receipt Date: 20140421
  Transmission Date: 20141212
  Serious: Yes (Disabling)
  Sender: FDA-Public Use
  Company Number: None

PATIENT
  Age: 64 Year
  Sex: Female
  Weight: 44.45 kg

DRUGS (1)
  1. SULFAMETHOXAZOLE-TMP DS [Suspect]
     Indication: URINARY TRACT INFECTION
     Dosage: 1 TABLET, TWICE DAILY, TAKEN BY MOUTH
     Route: 048
     Dates: start: 20140403, end: 20140404

REACTIONS (8)
  - Nausea [None]
  - Vomiting [None]
  - Decreased appetite [None]
  - Hallucination [None]
  - Night sweats [None]
  - Diarrhoea [None]
  - Dehydration [None]
  - Impaired work ability [None]
